FAERS Safety Report 7858580-X (Version None)
Quarter: 2011Q4

REPORT INFORMATION
  Report Type: 
  Country: None (occurrence: None)
  Receive Date: 20111027
  Receipt Date: 20110131
  Transmission Date: 20120403
  Serious: Yes (Other)
  Sender: FDA-Public Use
  Company Number: US-BAYER-2011-011469

PATIENT
  Sex: Female

DRUGS (2)
  1. YAZ [Suspect]
     Dosage: UNK
     Dates: start: 20081201, end: 20090501
  2. YAZ [Suspect]
     Indication: PRODUCT USED FOR UNKNOWN INDICATION
     Dosage: UNK
     Dates: start: 20071201, end: 20080201

REACTIONS (9)
  - BREAST DISCHARGE [None]
  - PAIN [None]
  - DEPRESSION [None]
  - HYPERTHYROIDISM [None]
  - HYPERTENSION [None]
  - ANXIETY [None]
  - FATIGUE [None]
  - GALLBLADDER DISORDER [None]
  - LOSS OF LIBIDO [None]
